FAERS Safety Report 14163333 (Version 2)
Quarter: 2017Q4

REPORT INFORMATION
  Report Type: Spontaneous
  Country: JP (occurrence: JP)
  Receive Date: 20171106
  Receipt Date: 20171117
  Transmission Date: 20180321
  Serious: Yes (Other)
  Sender: FDA-Public Use
  Company Number: JP-VIIV HEALTHCARE LIMITED-JP2017JPN165994

PATIENT
  Age: 38 Year
  Sex: Female

DRUGS (2)
  1. TRIUMEQ [Suspect]
     Active Substance: ABACAVIR SULFATE\DOLUTEGRAVIR SODIUM\LAMIVUDINE
     Indication: HIV INFECTION
     Dosage: 1 DF, 1D
     Route: 048
  2. MEFLOQUINE HYDROCHLORIDE. [Concomitant]
     Active Substance: MEFLOQUINE HYDROCHLORIDE
     Dosage: 1 DF, ONCE PER WEEK

REACTIONS (5)
  - Central nervous system lesion [Recovering/Resolving]
  - Apallic syndrome [Recovered/Resolved]
  - Condition aggravated [Recovered/Resolved]
  - Immune reconstitution inflammatory syndrome [Recovered/Resolved]
  - Nervous system disorder [Recovered/Resolved]
